FAERS Safety Report 19312537 (Version 1)
Quarter: 2021Q2

REPORT INFORMATION
  Report Type: Spontaneous
  Country: US (occurrence: US)
  Receive Date: 20210527
  Receipt Date: 20210527
  Transmission Date: 20210717
  Serious: No
  Sender: FDA-Public Use
  Company Number: US-INDIVIOR US-INDV-128378-2021

PATIENT

DRUGS (1)
  1. PERSERIS [Suspect]
     Active Substance: RISPERIDONE
     Indication: SCHIZOPHRENIA
     Dosage: 90 MILLIGRAM, QMO (4TH DOSE)
     Route: 065
     Dates: start: 202011

REACTIONS (6)
  - Psychomotor hyperactivity [Not Recovered/Not Resolved]
  - Wrong technique in product usage process [Recovered/Resolved]
  - Injection site pain [Not Recovered/Not Resolved]
  - Drug effect less than expected [Unknown]
  - Incorrect dose administered [Recovered/Resolved]
  - Fatigue [Recovered/Resolved]

NARRATIVE: CASE EVENT DATE: 20210202
